FAERS Safety Report 7340877-3 (Version None)
Quarter: 2011Q1

REPORT INFORMATION
  Report Type: 
  Country: None (occurrence: None)
  Receive Date: 20110228
  Receipt Date: 20110210
  Transmission Date: 20110831
  Serious: Yes (Hospitalization)
  Sender: FDA-Public Use
  Company Number: 027341

PATIENT
  Sex: Male
  Weight: 24.1 kg

DRUGS (9)
  1. LACOSAMIDE [Suspect]
     Indication: EPILEPSY
     Dosage: MILLILETERS ORAL), (3 MILLILETERS ORAL), (5 MILLILETERS ORAL), (7 MILLILETERS ORAL), (8 MILLILETERS
     Route: 048
     Dates: start: 20110104, end: 20110112
  2. LACOSAMIDE [Suspect]
     Indication: EPILEPSY
     Dosage: MILLILETERS ORAL), (3 MILLILETERS ORAL), (5 MILLILETERS ORAL), (7 MILLILETERS ORAL), (8 MILLILETERS
     Route: 048
     Dates: start: 20110113, end: 20110119
  3. LACOSAMIDE [Suspect]
     Indication: EPILEPSY
     Dosage: MILLILETERS ORAL), (3 MILLILETERS ORAL), (5 MILLILETERS ORAL), (7 MILLILETERS ORAL), (8 MILLILETERS
     Route: 048
     Dates: start: 20110202
  4. LACOSAMIDE [Suspect]
     Indication: EPILEPSY
     Dosage: MILLILETERS ORAL), (3 MILLILETERS ORAL), (5 MILLILETERS ORAL), (7 MILLILETERS ORAL), (8 MILLILETERS
     Route: 048
     Dates: start: 20110120, end: 20110126
  5. LACOSAMIDE [Suspect]
     Indication: EPILEPSY
     Dosage: MILLILETERS ORAL), (3 MILLILETERS ORAL), (5 MILLILETERS ORAL), (7 MILLILETERS ORAL), (8 MILLILETERS
     Route: 048
     Dates: start: 20110127, end: 20110201
  6. LAMOTFIGINE [Concomitant]
  7. KLONOPIN [Concomitant]
  8. DIASTAT [Concomitant]
  9. METHYLPHENIDATE [Concomitant]

REACTIONS (6)
  - RESPIRATORY RATE INCREASED [None]
  - GASTROENTERITIS [None]
  - BLOOD SODIUM DECREASED [None]
  - HEART RATE INCREASED [None]
  - CREATININE URINE DECREASED [None]
  - WHITE BLOOD CELL COUNT DECREASED [None]
